FAERS Safety Report 6660733-3 (Version None)
Quarter: 2010Q1

REPORT INFORMATION
  Report Type: 
  Country: None (occurrence: None)
  Receive Date: 20100326
  Receipt Date: 20100315
  Transmission Date: 20100710
  Serious: Yes (Other)
  Sender: FDA-Public Use
  Company Number: 009026

PATIENT
  Sex: Female
  Weight: 87 kg

DRUGS (1)
  1. CIMZIA [Suspect]
     Indication: POLYARTHRITIS
     Dosage: (400 MG 1X/2 SUBCUTANEOUS)
     Route: 058
     Dates: start: 20091202, end: 20100113

REACTIONS (1)
  - RASH GENERALISED [None]
